FAERS Safety Report 10221159 (Version 1)
Quarter: 2014Q2

REPORT INFORMATION
  Report Type: Spontaneous
  Country: US (occurrence: US)
  Receive Date: 20140606
  Receipt Date: 20140606
  Transmission Date: 20141212
  Serious: No
  Sender: FDA-Public Use
  Company Number: US-TEVA-486326USA

PATIENT
  Age: 26 Year
  Sex: Female
  Weight: 59.02 kg

DRUGS (2)
  1. PARAGARD 380A [Suspect]
     Indication: CONTRACEPTION
     Route: 015
     Dates: start: 201312
  2. PARAGARD 380A [Suspect]
     Route: 015
     Dates: start: 201404, end: 20140530

REACTIONS (3)
  - Device expulsion [Recovered/Resolved]
  - Dysmenorrhoea [Unknown]
  - Menorrhagia [Unknown]
